FAERS Safety Report 21039244 (Version 1)
Quarter: 2022Q3

REPORT INFORMATION
  Report Type: Spontaneous
  Country: GB (occurrence: GB)
  Receive Date: 20220704
  Receipt Date: 20220704
  Transmission Date: 20221027
  Serious: Yes (Other)
  Sender: FDA-Public Use
  Company Number: None

PATIENT
  Age: 38 Year
  Sex: Female

DRUGS (1)
  1. ROPINIROLE [Suspect]
     Active Substance: ROPINIROLE
     Indication: Restlessness

REACTIONS (2)
  - Insomnia [Not Recovered/Not Resolved]
  - Impulsive behaviour [Not Recovered/Not Resolved]
